FAERS Safety Report 9072155 (Version 1)
Quarter: 2013Q1

REPORT INFORMATION
  Report Type: Report from Study
  Country: US (occurrence: US)
  Receive Date: 20130128
  Receipt Date: 20130128
  Transmission Date: 20140127
  Serious: No
  Sender: FDA-Public Use
  Company Number: US-ABBOTT-12P-163-0917261-00

PATIENT
  Age: 52 Year
  Sex: Female

DRUGS (7)
  1. HUMIRA 40 MG/0.8 ML PEN [Suspect]
     Indication: CROHN^S DISEASE
     Dosage: LOADING DOSE
     Dates: start: 20120307
  2. EFFEXOR [Concomitant]
     Indication: DEPRESSION
  3. TOPAMAX [Concomitant]
     Indication: MIGRAINE
  4. LORCET [Concomitant]
     Indication: BACK PAIN
  5. FLEXERIL [Concomitant]
     Indication: BACK PAIN
  6. IMITREX [Concomitant]
     Indication: MIGRAINE
     Dosage: TAKEN IF TOPAMAX DOESN^T WORK
  7. PROMETHAZINE [Concomitant]
     Indication: NAUSEA

REACTIONS (2)
  - Contusion [Not Recovered/Not Resolved]
  - Myalgia [Unknown]
